FAERS Safety Report 9058548 (Version 1)
Quarter: 2013Q1

REPORT INFORMATION
  Report Type: Spontaneous
  Country: US (occurrence: US)
  Receive Date: 20130211
  Receipt Date: 20130211
  Transmission Date: 20140127
  Serious: No
  Sender: FDA-Public Use
  Company Number: US-TEVA-385031USA

PATIENT
  Sex: Male

DRUGS (2)
  1. NUVIGIL [Suspect]
     Dosage: 250 MILLIGRAM DAILY;
     Route: 048
  2. ALCOHOL [Concomitant]

REACTIONS (1)
  - Headache [Unknown]
